FAERS Safety Report 22024185 (Version 1)
Quarter: 2023Q1

REPORT INFORMATION
  Report Type: Spontaneous
  Country: US (occurrence: None)
  Receive Date: 20230223
  Receipt Date: 20230223
  Transmission Date: 20230417
  Serious: No
  Sender: FDA-Public Use
  Company Number: US-ROCHE-3000026

PATIENT
  Age: 49 Year
  Sex: Female
  Weight: 64.014 kg

DRUGS (3)
  1. XOLAIR [Suspect]
     Active Substance: OMALIZUMAB
     Indication: Rash
     Dosage: ONGOING: YES, XOLAIR PFS 150MG/ML
     Route: 058
     Dates: start: 202107
  2. XOLAIR [Suspect]
     Active Substance: OMALIZUMAB
  3. XOLAIR [Suspect]
     Active Substance: OMALIZUMAB

REACTIONS (7)
  - Skin fragility [Unknown]
  - Skin atrophy [Unknown]
  - Pain [Unknown]
  - Haemorrhage [Unknown]
  - Injection site haemorrhage [Unknown]
  - Device issue [Unknown]
  - Off label use [Unknown]

NARRATIVE: CASE EVENT DATE: 20220109
